FAERS Safety Report 23390749 (Version 3)
Quarter: 2024Q1

REPORT INFORMATION
  Report Type: Spontaneous
  Country: FR (occurrence: FR)
  Receive Date: 20240111
  Receipt Date: 20240119
  Transmission Date: 20240410
  Serious: Yes (Death, Life-Threatening, Hospitalization, Other)
  Sender: FDA-Public Use
  Company Number: FR-ALXN-202401EEA000529FR

PATIENT
  Age: 52 Year
  Sex: Male
  Weight: 34 kg

DRUGS (1)
  1. SOLIRIS [Suspect]
     Active Substance: ECULIZUMAB
     Indication: Atypical haemolytic uraemic syndrome
     Dosage: 1200 MILLIGRAM, Q2W
     Route: 065
     Dates: start: 20231201, end: 20231227

REACTIONS (6)
  - Respiratory distress [Fatal]
  - Cardio-respiratory arrest [Fatal]
  - Gastrointestinal haemorrhage [Fatal]
  - Pneumonitis [Fatal]
  - Device related infection [Fatal]
  - Urinary tract infection [Fatal]

NARRATIVE: CASE EVENT DATE: 20240109
